FAERS Safety Report 10367498 (Version 1)
Quarter: 2014Q3

REPORT INFORMATION
  Report Type: Spontaneous
  Country: US (occurrence: US)
  Receive Date: 20140807
  Receipt Date: 20140807
  Transmission Date: 20150326
  Serious: No
  Sender: FDA-Public Use
  Company Number: US-BAYER-2014-117883

PATIENT
  Age: 75 Year
  Sex: Female

DRUGS (3)
  1. LISINOPRIL. [Concomitant]
     Active Substance: LISINOPRIL
  2. ALEVE [Suspect]
     Active Substance: NAPROXEN SODIUM
     Dosage: 1-2 DF, BID
     Route: 048
     Dates: start: 201407, end: 20140801
  3. PRILOSEC [Concomitant]
     Active Substance: OMEPRAZOLE MAGNESIUM

REACTIONS (3)
  - Dizziness [Not Recovered/Not Resolved]
  - Extra dose administered [None]
  - Incorrect drug administration duration [None]

NARRATIVE: CASE EVENT DATE: 201407
